FAERS Safety Report 8005697-5 (Version None)
Quarter: 2011Q4

REPORT INFORMATION
  Report Type: 
  Country: None (occurrence: None)
  Receive Date: 20111223
  Receipt Date: 20111221
  Transmission Date: 20120403
  Serious: Yes (Other)
  Sender: FDA-Public Use
  Company Number: US-ROCHE-803113

PATIENT
  Sex: Female
  Weight: 68.1 kg

DRUGS (4)
  1. ACCUTANE [Suspect]
  2. ACCUTANE [Suspect]
     Dates: start: 20030701, end: 20031201
  3. ACCUTANE [Suspect]
     Indication: PRODUCT USED FOR UNKNOWN INDICATION
     Route: 065
  4. ACCUTANE [Suspect]
     Route: 065

REACTIONS (3)
  - INFLAMMATORY BOWEL DISEASE [None]
  - DEPRESSION [None]
  - SUICIDE ATTEMPT [None]
